FAERS Safety Report 18042389 (Version 1)
Quarter: 2020Q3

REPORT INFORMATION
  Report Type: Spontaneous
  Country: US (occurrence: US)
  Receive Date: 20200716
  Receipt Date: 20200716
  Transmission Date: 20201103
  Serious: Yes (Life-Threatening)
  Sender: FDA-Public Use
  Company Number: None

PATIENT
  Age: 45 Year
  Sex: Female

DRUGS (1)
  1. PACLITAXEL (PACLITAXEL PROTEIN?BOUND 100MG/VIL INJ) [Suspect]
     Active Substance: PACLITAXEL
     Indication: LUNG NEOPLASM MALIGNANT
     Dates: start: 20190711, end: 20190711

REACTIONS (10)
  - Skin discolouration [None]
  - Palpitations [None]
  - Pyrexia [None]
  - Tachycardia [None]
  - Drug hypersensitivity [None]
  - Feeling hot [None]
  - Hypertension [None]
  - Nausea [None]
  - Dizziness [None]
  - Anxiety [None]

NARRATIVE: CASE EVENT DATE: 20190711
